FAERS Safety Report 4619684-8 (Version None)
Quarter: 2005Q1

REPORT INFORMATION
  Report Type: 
  Country: None (occurrence: None)
  Receive Date: 20050324
  Receipt Date: 20050311
  Transmission Date: 20050727
  Serious: Yes (Death, Other)
  Sender: FDA-Public Use
  Company Number: 2005013942

PATIENT
  Sex: Male

DRUGS (5)
  1. PREDNISONE [Suspect]
     Indication: ROSACEA
     Route: 064
  2. ERYTHROMYCIN [Suspect]
     Indication: ROSACEA
     Dosage: 1 D
     Route: 064
  3. INSULIN [Suspect]
     Indication: ILL-DEFINED DISORDER
     Route: 064
  4. MIFEPRISTONE (MIFEPRISTONE) [Suspect]
     Indication: ILL-DEFINED DISORDER
     Route: 064
  5. DINOPROSTONE (DINOPROSTONE) [Suspect]
     Indication: ILL-DEFINED DISORDER
     Route: 064

REACTIONS (6)
  - DRUG EXPOSURE DURING PREGNANCY [None]
  - FOETAL ARRHYTHMIA [None]
  - FOETAL CARDIAC DISORDER [None]
  - INTRA-UTERINE DEATH [None]
  - MATERNAL CONDITION AFFECTING FOETUS [None]
  - OLIGOHYDRAMNIOS [None]
